FAERS Safety Report 6086164-5 (Version None)
Quarter: 2009Q1

REPORT INFORMATION
  Report Type: 
  Country: None (occurrence: None)
  Receive Date: 20090217
  Receipt Date: 20090217
  Transmission Date: 20090719
  Serious: Yes (Other)
  Sender: FDA-Public Use
  Company Number: None

PATIENT
  Sex: Female
  Weight: 72.5755 kg

DRUGS (2)
  1. PAXIL [Suspect]
     Indication: ANXIETY DISORDER
     Dosage: 20 MG. ONCE DAILY PO
     Route: 048
     Dates: start: 19961125, end: 20070901
  2. PAXIL [Suspect]
     Indication: INSOMNIA
     Dosage: 20 MG. ONCE DAILY PO
     Route: 048
     Dates: start: 19961125, end: 20070901

REACTIONS (5)
  - AKATHISIA [None]
  - BRAIN INJURY [None]
  - DRUG WITHDRAWAL SYNDROME [None]
  - FEELING ABNORMAL [None]
  - IMPAIRED WORK ABILITY [None]
